FAERS Safety Report 9019633 (Version 2)
Quarter: 2013Q1

REPORT INFORMATION
  Report Type: Spontaneous
  Country: JP (occurrence: JP)
  Receive Date: 20130118
  Receipt Date: 20130208
  Transmission Date: 20140127
  Serious: Yes (Other)
  Sender: FDA-Public Use
  Company Number: JP-BRISTOL-MYERS SQUIBB COMPANY-17247990

PATIENT
  Age: 51 Year
  Sex: Female
  Weight: 36.2 kg

DRUGS (6)
  1. ERBITUX SOLN FOR INF 5MG/ML [Suspect]
     Indication: RECTAL CANCER
     Dosage: 400MG 1/1/WEEK?INCLUDING SKIPPED WEEK(300MG 1/1 WEEK)?22NOV12-22NOV12?29NOV2012-ONG
     Route: 041
     Dates: start: 20121122, end: 20121219
  2. ELPLAT [Suspect]
     Indication: RECTAL CANCER
     Route: 041
     Dates: start: 20121122
  3. 5-FLUOROURACIL [Concomitant]
     Indication: RECTAL CANCER
     Dosage: INCLUDIMG SKIPPED WEEK?2100 MG 1/1 WEEK
     Route: 041
     Dates: start: 20121122
  4. EMEND [Concomitant]
     Dosage: 22NOV2012:125MG?23NOV2012-ONG:80MG(1/1DAY)
     Route: 048
     Dates: start: 20121122
  5. CALCIUM LEVOFOLINATE [Concomitant]
     Indication: RECTAL CANCER
     Dosage: INCLUDIMG SKIPPED WEEK
     Route: 041
     Dates: start: 20121122
  6. ALOXI [Concomitant]
     Route: 041
     Dates: start: 20121122

REACTIONS (1)
  - Amylase increased [Recovered/Resolved]
